FAERS Safety Report 12211128 (Version 7)
Quarter: 2016Q3

REPORT INFORMATION
  Report Type: Report from Study
  Country: GB (occurrence: GB)
  Receive Date: 20160325
  Receipt Date: 20160812
  Transmission Date: 20161109
  Serious: Yes (Hospitalization, Other)
  Sender: FDA-Public Use
  Company Number: GB-BRISTOL-MYERS SQUIBB COMPANY-BMS-2016-019422

PATIENT
  Sex: Female

DRUGS (1)
  1. IPILIMUMAB [Suspect]
     Active Substance: IPILIMUMAB
     Indication: MALIGNANT MELANOMA
     Dosage: UNK
     Route: 065
     Dates: start: 20151126

REACTIONS (13)
  - Amnesia [Not Recovered/Not Resolved]
  - Fall [Unknown]
  - Asthenia [Unknown]
  - Diabetes mellitus [Unknown]
  - Feeling abnormal [Unknown]
  - Balance disorder [Recovering/Resolving]
  - Blood sodium decreased [Unknown]
  - Depressed mood [Recovering/Resolving]
  - Intracranial mass [Unknown]
  - Fatigue [Unknown]
  - Brain oedema [Unknown]
  - Gait disturbance [Unknown]
  - Peripheral swelling [Unknown]
